FAERS Safety Report 13129633 (Version 1)
Quarter: 2017Q1

REPORT INFORMATION
  Report Type: Spontaneous
  Country: DE (occurrence: DE)
  Receive Date: 20170119
  Receipt Date: 20170119
  Transmission Date: 20170428
  Serious: Yes (Congenital Anomaly, Other)
  Sender: FDA-Public Use
  Company Number: DE-ASTRAZENECA-2017SE03660

PATIENT
  Age: 1 Day
  Sex: Male
  Weight: 2.8 kg

DRUGS (3)
  1. QUETIAPINE. [Suspect]
     Active Substance: QUETIAPINE
     Indication: POST-TRAUMATIC STRESS DISORDER
     Route: 048
     Dates: start: 20151012, end: 20160713
  2. OMEPRAZOL [Concomitant]
     Active Substance: OMEPRAZOLE
     Indication: DYSPEPSIA
     Route: 064
  3. CITALOPRAM [Suspect]
     Active Substance: CITALOPRAM HYDROBROMIDE
     Indication: DEPRESSION
     Route: 064
     Dates: start: 20151012, end: 20160713

REACTIONS (6)
  - Respiratory disorder neonatal [Recovered/Resolved]
  - Pulmonary valve stenosis [Not Recovered/Not Resolved]
  - Small for dates baby [Recovering/Resolving]
  - Microcephaly [Recovering/Resolving]
  - Naevus flammeus [Not Recovered/Not Resolved]
  - Atrial septal defect [Not Recovered/Not Resolved]

NARRATIVE: CASE EVENT DATE: 20160713
